FAERS Safety Report 9774871 (Version 1)
Quarter: 2013Q4

REPORT INFORMATION
  Report Type: Spontaneous
  Country: US (occurrence: None)
  Receive Date: 20131219
  Receipt Date: 20131219
  Transmission Date: 20140711
  Serious: Yes (Hospitalization, Disabling)
  Sender: FDA-Public Use
  Company Number: None

PATIENT
  Age: 46 Year
  Sex: Female

DRUGS (9)
  1. RECLAST [Suspect]
     Indication: OSTEOPENIA
     Dosage: 5MG(100ML) IV ONCE A YEAR INTRAVENOUS INFUSION
     Route: 042
     Dates: start: 20131016
  2. NASONEX [Concomitant]
  3. ALVESCO HFA [Concomitant]
  4. ZANTAC [Concomitant]
  5. CALCIUM [Concomitant]
  6. MVI [Concomitant]
  7. VIT D3 [Concomitant]
  8. FLAXSEED OIL [Concomitant]
  9. PROBIOTICS [Concomitant]

REACTIONS (12)
  - Abdominal distension [None]
  - Flatulence [None]
  - Abdominal pain upper [None]
  - Aphagia [None]
  - Diarrhoea [None]
  - Nausea [None]
  - Diarrhoea [None]
  - Vomiting [None]
  - Endoscopic retrograde cholangiopancreatography [None]
  - Amylase increased [None]
  - Lipase increased [None]
  - Weight decreased [None]
